FAERS Safety Report 8042183-0 (Version None)
Quarter: 2012Q1

REPORT INFORMATION
  Report Type: 
  Country: None (occurrence: None)
  Receive Date: 20120112
  Receipt Date: 20120109
  Transmission Date: 20120608
  Serious: Yes (Hospitalization, Other)
  Sender: FDA-Public Use
  Company Number: US-AMGEN-USASP2012000356

PATIENT
  Age: 32 Year
  Sex: Female

DRUGS (5)
  1. LOVENOX [Concomitant]
     Route: 058
  2. ENBREL [Suspect]
     Indication: RHEUMATOID ARTHRITIS
     Dosage: 50 MG, QWK
     Route: 058
     Dates: start: 20020801, end: 20070601
  3. PREDNISONE TAB [Concomitant]
     Dosage: 20 MG, QD
     Route: 048
  4. FOLIC ACID [Concomitant]
     Dosage: UNK UNK, QD
     Route: 048
  5. PRENATAL                           /00231801/ [Concomitant]
     Dosage: UNK UNK, QD
     Route: 048

REACTIONS (5)
  - FOETAL HEART RATE DECREASED [None]
  - CERVIX DYSTOCIA [None]
  - IN VITRO FERTILISATION [None]
  - GESTATIONAL DIABETES [None]
  - UMBILICAL CORD COMPRESSION [None]
